FAERS Safety Report 8492589-0 (Version None)
Quarter: 2012Q2

REPORT INFORMATION
  Report Type: 
  Country: None (occurrence: None)
  Receive Date: 20120629
  Receipt Date: 20120629
  Transmission Date: 20120825
  Serious: Yes (Life-Threatening)
  Sender: FDA-Public Use
  Company Number: None

PATIENT
  Sex: Female

DRUGS (1)
  1. HUMIRA [Suspect]
     Dates: start: 20120510

REACTIONS (4)
  - CONDITION AGGRAVATED [None]
  - HEADACHE [None]
  - RASH [None]
  - ASTHMA [None]
